FAERS Safety Report 9889200 (Version 1)
Quarter: 2014Q1

REPORT INFORMATION
  Report Type: Spontaneous
  Country: US (occurrence: None)
  Receive Date: 20140207
  Receipt Date: 20140207
  Transmission Date: 20141002
  Serious: Yes (Hospitalization)
  Sender: FDA-Public Use
  Company Number: SP07473

PATIENT
  Age: 48 Year
  Sex: Female
  Weight: 166.47 kg

DRUGS (2)
  1. XIFAXAN [Suspect]
     Indication: OVERGROWTH BACTERIAL
     Dosage: 200 MG (200 MG, 1 IN 1 D), ORAL
     Route: 048
     Dates: start: 20131114, end: 20131123
  2. POTASSIUM [Concomitant]

REACTIONS (4)
  - Cough [None]
  - Pyrexia [None]
  - Alveolitis allergic [None]
  - Hypoxia [None]
